FAERS Safety Report 22784196 (Version 7)
Quarter: 2023Q4

REPORT INFORMATION
  Report Type: Spontaneous
  Country: BR (occurrence: BR)
  Receive Date: 20230803
  Receipt Date: 20231204
  Transmission Date: 20240109
  Serious: Yes (Hospitalization, Other)
  Sender: FDA-Public Use
  Company Number: BR-SA-SAC20230801000138

PATIENT
  Age: 2 Year
  Sex: Male
  Weight: 10 kg

DRUGS (3)
  1. SABRIL [Suspect]
     Active Substance: VIGABATRIN
     Indication: Infantile spasms
     Dosage: 3.5 DF, QD (1 WHOLE TABLET IN MORNING, HALF A TABLET IN AFTERNOON AND ANOTHER WHOLE TABLET AT NIGHT)
     Route: 065
     Dates: start: 202210, end: 2023
  2. SABRIL [Suspect]
     Active Substance: VIGABATRIN
     Dosage: 3.5 DF, QD (1 WHOLE TABLET IN MORNING, HALF A TABLET IN AFTERNOON AND ANOTHER WHOLE TABLET AT NIGHT)
     Route: 065
     Dates: start: 202210, end: 2023
  3. SABRIL [Suspect]
     Active Substance: VIGABATRIN
     Dosage: 3.5 DF, QD (1 WHOLE TABLET IN MORNING, HALF A TABLET IN AFTERNOON AND ANOTHER WHOLE TABLET AT NIGHT)
     Route: 065
     Dates: start: 202210, end: 2023

REACTIONS (8)
  - Tachycardia [Unknown]
  - Poor quality product administered [Unknown]
  - Muscle spasms [Unknown]
  - Oxygen saturation decreased [Unknown]
  - Pyrexia [Unknown]
  - Irritability [Unknown]
  - Seizure [Not Recovered/Not Resolved]
  - Crying [Unknown]

NARRATIVE: CASE EVENT DATE: 20230701
